FAERS Safety Report 18228477 (Version 1)
Quarter: 2020Q3

REPORT INFORMATION
  Report Type: Spontaneous
  Country: US (occurrence: US)
  Receive Date: 20200903
  Receipt Date: 20200903
  Transmission Date: 20201103
  Serious: No
  Sender: FDA-Public Use
  Company Number: US-BAYER-2020-185476

PATIENT
  Age: 43 Year
  Sex: Female

DRUGS (1)
  1. GADAVIST [Suspect]
     Active Substance: GADOBUTROL
     Indication: DEAFNESS
     Dosage: 7 ML, ONCE
     Route: 042
     Dates: start: 20200828, end: 20200828

REACTIONS (1)
  - Urticaria [None]

NARRATIVE: CASE EVENT DATE: 20200828
